FAERS Safety Report 12396175 (Version 1)
Quarter: 2016Q2

REPORT INFORMATION
  Report Type: Spontaneous
  Country: BR (occurrence: BR)
  Receive Date: 20160524
  Receipt Date: 20160524
  Transmission Date: 20160815
  Serious: Yes (Other)
  Sender: FDA-Public Use
  Company Number: BR-AMGEN-BRASP2016064679

PATIENT
  Age: 53 Year
  Sex: Female
  Weight: 150 kg

DRUGS (5)
  1. METHOTREXATE [Concomitant]
     Active Substance: METHOTREXATE
     Dosage: 8 ^CP^ OF 2.5 MG EACH, 1X/WEEK
  2. ATENOLOL. [Concomitant]
     Active Substance: ATENOLOL
     Dosage: 1 ^CP^ OF 100 MG, DAILY
  3. ENBREL [Suspect]
     Active Substance: ETANERCEPT
     Indication: RHEUMATOID ARTHRITIS
     Dosage: 50 MG, 1X/WEEK
     Route: 058
     Dates: start: 201604
  4. FOLIC ACID. [Concomitant]
     Active Substance: FOLIC ACID
     Dosage: 2 ^CP^, WEEKLY
  5. XENICAL [Concomitant]
     Active Substance: ORLISTAT
     Dosage: 1 ^CP^, DAILY

REACTIONS (4)
  - Respiratory tract infection [Unknown]
  - Dysphonia [Not Recovered/Not Resolved]
  - Influenza [Not Recovered/Not Resolved]
  - Cough [Not Recovered/Not Resolved]

NARRATIVE: CASE EVENT DATE: 2016
